FAERS Safety Report 24937268 (Version 5)
Quarter: 2025Q3

REPORT INFORMATION
  Report Type: Report from Study
  Country: CA (occurrence: CA)
  Receive Date: 20250206
  Receipt Date: 20250929
  Transmission Date: 20251020
  Serious: Yes (Other)
  Sender: CELLTRION
  Company Number: CA-CELLTRION INC.-2024CA028212

PATIENT

DRUGS (27)
  1. USTEKINUMAB [Suspect]
     Active Substance: USTEKINUMAB
     Indication: Crohn^s disease
     Dosage: 90 MG, Q4WEEKS/ 90 MG, 1 EVERY 4 WEEKS
     Route: 058
     Dates: start: 20241204
  2. CLOBETASOL [Concomitant]
     Active Substance: CLOBETASOL
  3. COLCHICINE [Concomitant]
     Active Substance: COLCHICINE
  4. CYANOCOBALAMIN [Concomitant]
     Active Substance: CYANOCOBALAMIN
  5. DESONIDE [Concomitant]
     Active Substance: DESONIDE
  6. CHOLECALCIFEROL [Concomitant]
     Active Substance: CHOLECALCIFEROL
  7. DOCUSATE SODIUM [Concomitant]
     Active Substance: DOCUSATE SODIUM
  8. FLUTICASONE [Concomitant]
     Active Substance: FLUTICASONE
  9. FUROSEMIDE [Concomitant]
     Active Substance: FUROSEMIDE
     Route: 065
  10. HYDRALAZINE [Concomitant]
     Active Substance: HYDRALAZINE HYDROCHLORIDE
  11. LABETALOL [Concomitant]
     Active Substance: LABETALOL
  12. LORAZEPAM [Concomitant]
     Active Substance: LORAZEPAM
     Route: 065
  13. MINOCYCLINE [Concomitant]
     Active Substance: MINOCYCLINE HYDROCHLORIDE
  14. NYSTATIN [Concomitant]
     Active Substance: NYSTATIN
  15. PENTASA [Concomitant]
     Active Substance: MESALAMINE
  16. PERINDOPRIL [Concomitant]
     Active Substance: PERINDOPRIL
  17. POTASSIUM [Concomitant]
     Active Substance: POTASSIUM
  18. ROSUVASTATIN [Concomitant]
     Active Substance: ROSUVASTATIN
     Route: 058
  19. ASPIRIN [Concomitant]
     Active Substance: ASPIRIN
  20. ALBUTEROL [Concomitant]
     Active Substance: ALBUTEROL
  21. GLYCOPYRROLATE [Concomitant]
     Active Substance: GLYCOPYRROLATE
  22. PANTOPRAZOLE [Concomitant]
     Active Substance: PANTOPRAZOLE
  23. SPIRONOLACTONE [Concomitant]
     Active Substance: SPIRONOLACTONE
  24. VITAMIN B1 [Concomitant]
     Active Substance: THIAMINE HYDROCHLORIDE
  25. VITAMIN B12 [Concomitant]
     Active Substance: CYANOCOBALAMIN
  26. VITAMIN D3 [Concomitant]
     Active Substance: CHOLECALCIFEROL
  27. VITAMIN B1 [Concomitant]
     Active Substance: THIAMINE HYDROCHLORIDE

REACTIONS (16)
  - Abdominal pain upper [Unknown]
  - Anaemia [Unknown]
  - Barrett^s oesophagus [Not Recovered/Not Resolved]
  - Constipation [Unknown]
  - Haematochezia [Unknown]
  - Hypotension [Unknown]
  - Flank pain [Unknown]
  - Renal pain [Unknown]
  - Red blood cell count decreased [Unknown]
  - White blood cell count increased [Unknown]
  - Intentional product use issue [Unknown]
  - Treatment delayed [Unknown]
  - Asthma [Not Recovered/Not Resolved]
  - Cough [Not Recovered/Not Resolved]
  - Fatigue [Not Recovered/Not Resolved]
  - Drug effect less than expected [Unknown]

NARRATIVE: CASE EVENT DATE: 20250501
